FAERS Safety Report 6025520-8 (Version None)
Quarter: 2008Q4

REPORT INFORMATION
  Report Type: 
  Country: None (occurrence: None)
  Receive Date: 20081231
  Receipt Date: 20081222
  Transmission Date: 20090506
  Serious: Yes (Other)
  Sender: FDA-Public Use
  Company Number: GB-ELI_LILLY_AND_COMPANY-GB200811006173

PATIENT
  Sex: Male
  Weight: 146.6 kg

DRUGS (2)
  1. BYETTA [Suspect]
     Dosage: 5 UG, UNKNOWN
     Route: 058
     Dates: start: 20081106, end: 20081121
  2. METFORMIN HCL [Concomitant]
     Dosage: 1 G, 2/D
     Route: 065

REACTIONS (3)
  - DIPLOPIA [None]
  - EYE PAIN [None]
  - RETINOPATHY [None]
